FAERS Safety Report 10727296 (Version 1)
Quarter: 2015Q1

REPORT INFORMATION
  Report Type: Spontaneous
  Country: DE (occurrence: DE)
  Receive Date: 20150121
  Receipt Date: 20150121
  Transmission Date: 20150721
  Serious: Yes (Death, Other)
  Sender: FDA-Public Use
  Company Number: DE-CELGENE-062-21880-10042489

PATIENT

DRUGS (5)
  1. REVLIMID [Suspect]
     Active Substance: LENALIDOMIDE
     Indication: PLASMA CELL MYELOMA
     Dosage: 25 MILLIGRAM
     Route: 048
     Dates: start: 200703, end: 201103
  2. ANTITHROMBOTICS [Concomitant]
     Indication: THROMBOSIS PROPHYLAXIS
     Route: 065
  3. LMWH [Concomitant]
     Indication: PRODUCT USED FOR UNKNOWN INDICATION
     Route: 065
  4. DEXAMETHASONE. [Concomitant]
     Active Substance: DEXAMETHASONE
     Indication: PLASMA CELL MYELOMA
     Dosage: 40 MILLIGRAM
     Route: 065
     Dates: start: 200703, end: 201103
  5. ASA [Concomitant]
     Active Substance: ASPIRIN
     Indication: PRODUCT USED FOR UNKNOWN INDICATION
     Route: 065

REACTIONS (19)
  - Graft versus host disease [Fatal]
  - Death [Fatal]
  - Leukopenia [Unknown]
  - Fatigue [Unknown]
  - Basal cell carcinoma [Unknown]
  - Acute myeloid leukaemia [Unknown]
  - Plasma cell myeloma [Unknown]
  - Deep vein thrombosis [Unknown]
  - Drug intolerance [Unknown]
  - Haematotoxicity [Unknown]
  - Peripheral sensory neuropathy [Unknown]
  - Sepsis [Fatal]
  - Infection [Unknown]
  - Rash [Unknown]
  - Adenocarcinoma [Unknown]
  - Plasma cell myeloma [Fatal]
  - Cytopenia [Unknown]
  - Thrombocytopenia [Unknown]
  - Embolism [Unknown]
